FAERS Safety Report 7075275-3 (Version None)
Quarter: 2010Q4

REPORT INFORMATION
  Report Type: 
  Country: None (occurrence: None)
  Receive Date: 20101030
  Receipt Date: 20100916
  Transmission Date: 20110411
  Serious: No
  Sender: FDA-Public Use
  Company Number: US-WYE-H16735510

PATIENT
  Sex: Female
  Weight: 61.29 kg

DRUGS (3)
  1. LYBREL [Suspect]
     Indication: MIGRAINE
     Route: 048
     Dates: start: 20100707, end: 20100713
  2. LYBREL [Suspect]
     Indication: UTERINE SPASM
  3. PROTONIX [Concomitant]

REACTIONS (2)
  - DRUG INEFFECTIVE [None]
  - METRORRHAGIA [None]
